FAERS Safety Report 5772353-3 (Version None)
Quarter: 2008Q2

REPORT INFORMATION
  Report Type: 
  Country: None (occurrence: None)
  Receive Date: 20080601
  Receipt Date: 20080130
  Transmission Date: 20081010
  Serious: No
  Sender: FDA-Public Use
  Company Number: US200709006811

PATIENT
  Age: 58 Year
  Sex: Female
  Weight: 88.9 kg

DRUGS (9)
  1. BYETTA [Suspect]
     Indication: TYPE 2 DIABETES MELLITUS
     Dosage: 5 UG, 2/D, SUBCUTANEOUS
     Route: 058
     Dates: start: 20070922
  2. BYETTA [Suspect]
     Indication: TYPE 2 DIABETES MELLITUS
     Dosage: 5 UG, 2/D, SUBCUTANEOUS
     Route: 058
     Dates: start: 20070901
  3. BYETTA [Suspect]
     Indication: TYPE 2 DIABETES MELLITUS
     Dosage: 5 UG, 2/D, SUBCUTANEOUS
     Route: 058
     Dates: start: 20070901
  4. AVANDIA [Concomitant]
  5. METFORMIN HCL [Concomitant]
  6. SYNTHROID [Concomitant]
  7. ZETIA [Concomitant]
  8. TRICOR [Concomitant]
  9. ASPIRIN /USA/ (ACETYLSALICYLIC ACID) [Concomitant]

REACTIONS (8)
  - CRYING [None]
  - HYPERHIDROSIS [None]
  - INJECTION SITE BRUISING [None]
  - INJECTION SITE HAEMORRHAGE [None]
  - INJECTION SITE PAIN [None]
  - MALAISE [None]
  - NAUSEA [None]
  - WEIGHT DECREASED [None]
